FAERS Safety Report 6313419-9 (Version None)
Quarter: 2009Q3

REPORT INFORMATION
  Report Type: 
  Country: None (occurrence: None)
  Receive Date: 20090814
  Receipt Date: 20090814
  Transmission Date: 20100115
  Serious: Yes (Other)
  Sender: FDA-Public Use
  Company Number: None

PATIENT
  Age: 42 Year
  Sex: Female
  Weight: 71.6683 kg

DRUGS (2)
  1. MONISTAT [Suspect]
     Indication: FUNGAL INFECTION
     Dosage: 1 OVERNIGHT INSERT ONCE VAG
     Route: 067
     Dates: start: 20090812, end: 20090812
  2. NUVARING [Concomitant]

REACTIONS (1)
  - VULVOVAGINAL BURNING SENSATION [None]
